FAERS Safety Report 15189744 (Version 1)
Quarter: 2018Q3

REPORT INFORMATION
  Report Type: Spontaneous
  Country: IT (occurrence: IT)
  Receive Date: 20180724
  Receipt Date: 20180724
  Transmission Date: 20181010
  Serious: Yes (Other)
  Sender: FDA-Public Use
  Company Number: IT-PFIZER INC-2018292631

PATIENT
  Age: 47 Year
  Sex: Female

DRUGS (1)
  1. LOETTE [Suspect]
     Active Substance: ETHINYL ESTRADIOL\LEVONORGESTREL
     Indication: ORAL CONTRACEPTION
     Dosage: 1 DF, 1X/DAY
     Route: 048
     Dates: start: 20180301, end: 20180520

REACTIONS (4)
  - Deep vein thrombosis [Recovering/Resolving]
  - Dyspnoea exertional [Recovering/Resolving]
  - Pulmonary embolism [Recovering/Resolving]
  - Oedema peripheral [Recovering/Resolving]

NARRATIVE: CASE EVENT DATE: 20180520
